FAERS Safety Report 5876631-9 (Version None)
Quarter: 2008Q3

REPORT INFORMATION
  Report Type: 
  Country: None (occurrence: None)
  Receive Date: 20080910
  Receipt Date: 20080827
  Transmission Date: 20090109
  Serious: Yes (Hospitalization, Other)
  Sender: FDA-Public Use
  Company Number: FR-ELI_LILLY_AND_COMPANY-FR200808005634

PATIENT
  Sex: Female

DRUGS (3)
  1. GEMZAR [Suspect]
     Indication: BREAST CANCER STAGE I
     Dosage: 2000 MG, UNKNOWN
     Route: 042
     Dates: start: 20051028, end: 20060601
  2. TAXOL [Concomitant]
     Indication: BREAST CANCER STAGE I
     Dosage: 280 MG, UNKNOWN
     Route: 042
     Dates: start: 20051028, end: 20060601
  3. FASLODEX [Concomitant]
     Dates: end: 20080610

REACTIONS (3)
  - BLOOD PRESSURE INCREASED [None]
  - GENERALISED OEDEMA [None]
  - PLEURAL EFFUSION [None]
